FAERS Safety Report 11556170 (Version 1)
Quarter: 2015Q3

REPORT INFORMATION
  Report Type: Spontaneous
  Country: US (occurrence: US)
  Receive Date: 20150925
  Receipt Date: 20150925
  Transmission Date: 20151125
  Serious: Yes (Other)
  Sender: FDA-Public Use
  Company Number: US-PFIZER INC-2015310175

PATIENT
  Sex: Male

DRUGS (3)
  1. ACETAMINOPHEN. [Concomitant]
     Active Substance: ACETAMINOPHEN
     Indication: CHOLESTASIS
  2. IBUPROFEN. [Suspect]
     Active Substance: IBUPROFEN
     Indication: CHOLESTASIS
     Dosage: 10 MG/KG, AS NEEDED (EVERY 8 HOURS)
  3. IBUPROFEN. [Suspect]
     Active Substance: IBUPROFEN
     Indication: PYREXIA

REACTIONS (2)
  - Kernicterus [Unknown]
  - Toxicity to various agents [Unknown]
